FAERS Safety Report 14759427 (Version 6)
Quarter: 2023Q2

REPORT INFORMATION
  Report Type: Spontaneous
  Country: US (occurrence: None)
  Receive Date: 20180413
  Receipt Date: 20230421
  Transmission Date: 20230722
  Serious: Yes (Other)
  Sender: FDA-Public Use
  Company Number: 2018SE44387

PATIENT
  Age: 15316 Day
  Sex: Male
  Weight: 93.4 kg

DRUGS (61)
  1. NEXIUM [Suspect]
     Active Substance: ESOMEPRAZOLE MAGNESIUM
     Indication: Gastrooesophageal reflux disease
     Route: 048
     Dates: start: 2009, end: 2010
  2. NEXIUM [Suspect]
     Active Substance: ESOMEPRAZOLE MAGNESIUM
     Indication: Gastrooesophageal reflux disease
     Dosage: EVERYDAY
     Route: 048
     Dates: start: 20090403
  3. NEXIUM [Suspect]
     Active Substance: ESOMEPRAZOLE MAGNESIUM
     Indication: Gastrooesophageal reflux disease
     Dosage: EVERYDAY
     Route: 048
     Dates: start: 20100226
  4. OMEPRAZOLE [Suspect]
     Active Substance: OMEPRAZOLE
     Indication: Gastrooesophageal reflux disease
     Route: 065
  5. OMEPRAZOLE [Suspect]
     Active Substance: OMEPRAZOLE
     Indication: Gastrooesophageal reflux disease
     Route: 048
     Dates: start: 20160514
  6. OMEPRAZOLE [Suspect]
     Active Substance: OMEPRAZOLE
     Indication: Gastrooesophageal reflux disease
     Dosage: TAKE 1 CAPSULE BY MOUTH ONCE A DAY AS DIRECTED. TAKE BEFORE BREAFAST FOR 8 WEEKS
     Route: 048
     Dates: start: 20170302
  7. PREVACID [Suspect]
     Active Substance: LANSOPRAZOLE
     Indication: Gastrooesophageal reflux disease
     Route: 065
     Dates: start: 2009, end: 2010
  8. PREVACID [Suspect]
     Active Substance: LANSOPRAZOLE
     Indication: Gastrooesophageal reflux disease
     Route: 065
     Dates: start: 200904, end: 200905
  9. PREVACID [Suspect]
     Active Substance: LANSOPRAZOLE
     Indication: Gastrooesophageal reflux disease
     Dosage: 30.0MG UNKNOWN
     Route: 048
     Dates: start: 20090501
  10. ASPIRIN [Concomitant]
     Active Substance: ASPIRIN
     Indication: Anticoagulant therapy
     Dates: start: 2014
  11. TYLENOL [Concomitant]
     Active Substance: ACETAMINOPHEN
     Indication: Pain
     Dates: end: 2009
  12. TUMS [Concomitant]
     Active Substance: CALCIUM CARBONATE
     Indication: Gastrooesophageal reflux disease
     Dates: start: 2007
  13. PEPCID AC [Concomitant]
     Active Substance: FAMOTIDINE
     Dates: start: 2008
  14. PEPCID AC [Concomitant]
     Active Substance: FAMOTIDINE
     Dates: start: 2010
  15. CLONIDINE [Concomitant]
     Active Substance: CLONIDINE
     Route: 048
     Dates: start: 20161006
  16. CRESTOR [Concomitant]
     Active Substance: ROSUVASTATIN CALCIUM
     Route: 048
     Dates: start: 20161006
  17. LEVEMIR [Concomitant]
     Active Substance: INSULIN DETEMIR
     Dates: start: 20161006
  18. NOVOLOG [Concomitant]
     Active Substance: INSULIN ASPART
     Dates: start: 20161006
  19. RENVELA [Concomitant]
     Active Substance: SEVELAMER CARBONATE
     Dosage: TAKE 5 TABLET BY MOUTH THREE TIMES A DAY WITH MEALS.
     Route: 048
     Dates: start: 20161006
  20. SENSIPAR [Concomitant]
     Active Substance: CINACALCET HYDROCHLORIDE
     Route: 048
     Dates: start: 20160810
  21. HUMALOG [Concomitant]
     Active Substance: INSULIN LISPRO
  22. SIMVASTATIN [Concomitant]
     Active Substance: SIMVASTATIN
     Dates: start: 20100226
  23. FUROSEMIDE [Concomitant]
     Active Substance: FUROSEMIDE
     Dates: start: 20100226
  24. TIGECYCLINE [Concomitant]
     Active Substance: TIGECYCLINE
  25. DILAUDID [Concomitant]
     Active Substance: HYDROMORPHONE HYDROCHLORIDE
  26. ACTOS [Concomitant]
     Active Substance: PIOGLITAZONE HYDROCHLORIDE
     Dates: start: 20090403
  27. ALTACE [Concomitant]
     Active Substance: RAMIPRIL
     Dates: start: 20090403
  28. IBUPROFEN [Concomitant]
     Active Substance: IBUPROFEN
  29. NAPROSYN [Concomitant]
     Active Substance: NAPROXEN
  30. CEPHALEXIN [Concomitant]
     Active Substance: CEPHALEXIN
     Route: 048
     Dates: start: 20151128
  31. CITALOPRAM [Concomitant]
     Active Substance: CITALOPRAM HYDROBROMIDE
  32. CIPROFLOXACIN [Concomitant]
     Active Substance: CIPROFLOXACIN
  33. LISINOPRIL [Concomitant]
     Active Substance: LISINOPRIL
  34. NEURONTIN [Concomitant]
     Active Substance: GABAPENTIN
  35. MIRALAX [Concomitant]
     Active Substance: POLYETHYLENE GLYCOL 3350
  36. PANTOPRAZOLE [Concomitant]
     Active Substance: PANTOPRAZOLE
  37. TRAMADOL [Concomitant]
     Active Substance: TRAMADOL
  38. LABETALOL [Concomitant]
     Active Substance: LABETALOL\LABETALOL HYDROCHLORIDE
  39. ZITHROMAX [Concomitant]
     Active Substance: AZITHROMYCIN DIHYDRATE
  40. CHERATUSSIN AC [Concomitant]
     Active Substance: CODEINE PHOSPHATE\GUAIFENESIN
  41. AMLODIPINE [Concomitant]
     Active Substance: AMLODIPINE BESYLATE
  42. SODIUM BICARBONATE [Concomitant]
     Active Substance: SODIUM BICARBONATE
  43. NYSTATIN [Concomitant]
     Active Substance: NYSTATIN
  44. NIFEDIPINE [Concomitant]
     Active Substance: NIFEDIPINE
  45. CLOTRIMAZOLE [Concomitant]
     Active Substance: CLOTRIMAZOLE
  46. ATORVASTATIN [Concomitant]
     Active Substance: ATORVASTATIN
  47. WARFARIN [Concomitant]
     Active Substance: WARFARIN
  48. CLINDAMYCIN [Concomitant]
     Active Substance: CLINDAMYCIN
  49. NITROFURANTOIN\NITROFURANTOIN MONOHYDRATE [Concomitant]
     Active Substance: NITROFURANTOIN\NITROFURANTOIN MONOHYDRATE
  50. METRONIDAZOLE [Concomitant]
     Active Substance: METRONIDAZOLE
  51. OXYCODONE [Concomitant]
     Active Substance: OXYCODONE
  52. MUPIROCIN [Concomitant]
     Active Substance: MUPIROCIN
  53. COLACE [Concomitant]
     Active Substance: DOCUSATE SODIUM
  54. DOXYCYCLINE [Concomitant]
     Active Substance: DOXYCYCLINE
     Dates: start: 20190924
  55. ACETAMINOPHEN\OXYCODONE HYDROCHLORIDE [Concomitant]
     Active Substance: ACETAMINOPHEN\OXYCODONE HYDROCHLORIDE
     Dates: start: 20190830
  56. MIRCERA [Concomitant]
     Active Substance: METHOXY POLYETHYLENE GLYCOL-EPOETIN BETA
     Dates: start: 20190830
  57. ASCORBIC ACID\BIOTIN\CALCIUM PANTOTHENATE\CYANOCOBALAMIN\FOLIC ACID\NI [Concomitant]
     Active Substance: ASCORBIC ACID\BIOTIN\CALCIUM PANTOTHENATE\CYANOCOBALAMIN\FOLIC ACID\NIACINAMIDE\PYRIDOXINE HYDROCHLO
     Dates: start: 20190830
  58. SULFAMETHOXAZOLE SODIUM/AMINOCAPROIC ACID/DIPOTASSIUM GLYCYRRHIZATE [Concomitant]
     Dates: start: 20190830
  59. NARCAN [Concomitant]
     Active Substance: NALOXONE HYDROCHLORIDE
     Dates: start: 20190830
  60. TRESIBA [Concomitant]
     Active Substance: INSULIN DEGLUDEC
     Dates: start: 20190830
  61. TRANEXAMIC ACID [Concomitant]
     Active Substance: TRANEXAMIC ACID
     Dates: start: 20190830

REACTIONS (6)
  - Chronic kidney disease [Unknown]
  - End stage renal disease [Not Recovered/Not Resolved]
  - Acute kidney injury [Unknown]
  - Nephrogenic anaemia [Unknown]
  - Renal failure [Unknown]
  - Hyperparathyroidism secondary [Unknown]

NARRATIVE: CASE EVENT DATE: 20100115
